FAERS Safety Report 5541966-6 (Version None)
Quarter: 2007Q4

REPORT INFORMATION
  Report Type: 
  Country: None (occurrence: None)
  Receive Date: 20071205
  Receipt Date: 20071120
  Transmission Date: 20080405
  Serious: Yes (Hospitalization)
  Sender: FDA-Public Use
  Company Number: 2007AL004949

PATIENT
  Age: 42 Year
  Sex: Female

DRUGS (1)
  1. IBUPROFEN [Suspect]
     Indication: ANALGESIC THERAPY

REACTIONS (1)
  - INTESTINAL DIAPHRAGM DISEASE [None]
